FAERS Safety Report 11803195 (Version 3)
Quarter: 2018Q2

REPORT INFORMATION
  Report Type: Spontaneous
  Country: FR (occurrence: FR)
  Receive Date: 20151204
  Receipt Date: 20180625
  Transmission Date: 20180711
  Serious: Yes (Death, Life-Threatening, Hospitalization, Other)
  Sender: FDA-Public Use
  Company Number: PHHY2015FR155916

PATIENT
  Age: 67 Year
  Sex: Male

DRUGS (17)
  1. PRAVASTATIN. [Interacting]
     Active Substance: PRAVASTATIN
     Indication: PRODUCT USED FOR UNKNOWN INDICATION
     Dosage: 40 MG, UNK
     Route: 065
  2. OLMESARTAN [Suspect]
     Active Substance: OLMESARTAN
     Dosage: 40 MG, UNK
     Route: 065
  3. FLUINDIONE [Concomitant]
     Active Substance: FLUINDIONE
     Dosage: 15 MG, UNK
     Route: 065
  4. FLUINDIONE [Concomitant]
     Active Substance: FLUINDIONE
     Indication: PRODUCT USED FOR UNKNOWN INDICATION
  5. HYDROCHLOROTHIAZIDE. [Suspect]
     Active Substance: HYDROCHLOROTHIAZIDE
     Indication: STAPHYLOCOCCAL INFECTION
     Dosage: 12.5 MG, UNK
     Route: 065
  6. OLMESARTAN [Suspect]
     Active Substance: OLMESARTAN
     Indication: STAPHYLOCOCCAL INFECTION
  7. GENTAMICIN. [Concomitant]
     Active Substance: GENTAMICIN
     Indication: CELLULITIS STAPHYLOCOCCAL
  8. AMIODARONE [Concomitant]
     Active Substance: AMIODARONE
     Indication: PRODUCT USED FOR UNKNOWN INDICATION
     Dosage: 200 MG
     Route: 065
  9. ALLOPURINOL. [Concomitant]
     Active Substance: ALLOPURINOL
     Dosage: 200 MG, UNK
     Route: 065
  10. PROPOFOL. [Concomitant]
     Active Substance: PROPOFOL
     Indication: ENDOTRACHEAL INTUBATION
     Route: 065
  11. AMIODARONE [Concomitant]
     Active Substance: AMIODARONE
     Dosage: 200 MG, UNK
     Route: 065
  12. GENTAMICIN. [Concomitant]
     Active Substance: GENTAMICIN
     Dosage: INTRAVENOUS TREATMENT FOR SHORT PERIOD OF TIME
     Route: 042
  13. ALLOPURINOL. [Concomitant]
     Active Substance: ALLOPURINOL
     Indication: PRODUCT USED FOR UNKNOWN INDICATION
     Dosage: 200 MG
     Route: 065
  14. FUSIDIC ACID [Interacting]
     Active Substance: FUSIDIC ACID
     Indication: STAPHYLOCOCCAL INFECTION
     Dosage: 1500 MG, QD
     Route: 048
  15. HYDROCHLOROTHIAZIDE. [Suspect]
     Active Substance: HYDROCHLOROTHIAZIDE
     Indication: STAPHYLOCOCCAL INFECTION
  16. CIPROFLOXACIN. [Suspect]
     Active Substance: CIPROFLOXACIN
     Indication: STAPHYLOCOCCAL INFECTION
     Dosage: 1000 MG, QD
     Route: 048
  17. AMIODARONE [Concomitant]
     Active Substance: AMIODARONE
     Dosage: UNK
     Route: 065

REACTIONS (19)
  - Multiple organ dysfunction syndrome [Fatal]
  - Renal tubular necrosis [Fatal]
  - Hypotension [Unknown]
  - Drug interaction [Fatal]
  - Rhabdomyolysis [Fatal]
  - Cholestasis [Fatal]
  - Shock [Fatal]
  - Hyporesponsive to stimuli [Unknown]
  - Blood bilirubin increased [Recovering/Resolving]
  - Vomiting [Fatal]
  - Diarrhoea [Fatal]
  - Jaundice [Fatal]
  - Metabolic acidosis [Unknown]
  - Toxicity to various agents [Fatal]
  - Hypernatraemia [Fatal]
  - Acute kidney injury [Fatal]
  - Gastrointestinal disorder [Unknown]
  - Hepatocellular injury [Fatal]
  - Dehydration [Unknown]
